FAERS Safety Report 4565586-5 (Version None)
Quarter: 2005Q1

REPORT INFORMATION
  Report Type: 
  Country: None (occurrence: None)
  Receive Date: 20050125
  Receipt Date: 20050125
  Transmission Date: 20050727
  Serious: Yes (Hospitalization)
  Sender: FDA-Public Use
  Company Number: None

PATIENT
  Age: 68 Year
  Sex: Male
  Weight: 96.3 kg

DRUGS (11)
  1. LOVASTATIN [Suspect]
     Indication: HYPERLIPIDAEMIA
     Dosage: 40MG/120, QD/ORAL
     Route: 048
     Dates: start: 20010509, end: 20020715
  2. TERAZOSIN HCL [Concomitant]
  3. FEXOFENADINE HCL [Concomitant]
  4. FLUOXETINE HCL [Concomitant]
  5. ALPRAZOLAM [Concomitant]
  6. COLCHICINE [Concomitant]
  7. DILTIAZEM (TIAZAC) [Concomitant]
  8. GEMFIBROZIL [Concomitant]
  9. LOVASTATIN [Concomitant]
  10. ETODOLAC [Concomitant]
  11. GEMFIBROZIL [Suspect]
     Dosage: 40 MG QD ORAL
     Route: 048

REACTIONS (1)
  - RHABDOMYOLYSIS [None]
